FAERS Safety Report 10590349 (Version 1)
Quarter: 2014Q4

REPORT INFORMATION
  Report Type: Other
  Country: DE (occurrence: DE)
  Receive Date: 20141118
  Receipt Date: 20141118
  Transmission Date: 20150529
  Serious: Yes (Congenital Anomaly, Other)
  Sender: FDA-Public Use
  Company Number: DE-MYLANLABS-2014M1010180

PATIENT

DRUGS (4)
  1. VENLAFAXINE [Suspect]
     Active Substance: VENLAFAXINE HYDROCHLORIDE
     Indication: DEPRESSION
     Dosage: 150 [MG/D ]; 0- 41.3 GESTATIONAL WEEK
     Route: 064
     Dates: start: 20130628, end: 20140414
  2. FEMIBION [Concomitant]
     Active Substance: VITAMINS
     Indication: PROPHYLAXIS OF NEURAL TUBE DEFECT
     Dosage: UNK; 0- 41.3 GESTATIONAL WEEK
     Route: 064
     Dates: start: 20130628, end: 20140414
  3. L-THYROXIN [Concomitant]
     Active Substance: LEVOTHYROXINE SODIUM
     Indication: HYPOTHYROIDISM
     Dosage: 25 [?G/D ]/ THERAPY STARTED AFTER DIAGNOSIS OF PREGNANCY
     Route: 064
  4. GRIPPEIMPFSTOFF [Concomitant]
     Active Substance: INFLUENZA VIRUS VACCINE
     Indication: IMMUNISATION
     Dosage: UNK; 20-20 GESTATIONAL WEEK
     Route: 064

REACTIONS (8)
  - Feeding disorder neonatal [Recovered/Resolved]
  - Neonatal asphyxia [Recovered/Resolved]
  - Developmental coordination disorder [Unknown]
  - Atrial septal defect [Unknown]
  - Hypotonia neonatal [Unknown]
  - Neonatal respiratory distress syndrome [Recovered/Resolved]
  - Foetal exposure during pregnancy [Unknown]
  - Floppy infant [Recovering/Resolving]

NARRATIVE: CASE EVENT DATE: 20140414
